FAERS Safety Report 4690315-4 (Version None)
Quarter: 2005Q2

REPORT INFORMATION
  Report Type: 
  Country: None (occurrence: None)
  Receive Date: 20050615
  Receipt Date: 20050310
  Transmission Date: 20051028
  Serious: Yes (Hospitalization, Other)
  Sender: FDA-Public Use
  Company Number: US-MERCK-0503USA02081

PATIENT
  Age: 38 Year
  Sex: Male
  Weight: 111 kg

DRUGS (2)
  1. CARDIZEM [Concomitant]
     Indication: RAYNAUD'S PHENOMENON
     Route: 065
  2. VIOXX [Suspect]
     Indication: BACK PAIN
     Route: 048
     Dates: start: 20000327, end: 20040101

REACTIONS (16)
  - CEREBROVASCULAR ACCIDENT [None]
  - CHEST PAIN [None]
  - DIZZINESS [None]
  - DYSPNOEA EXERTIONAL [None]
  - EMOTIONAL DISTRESS [None]
  - HEADACHE [None]
  - HEMIPLEGIA TRANSIENT [None]
  - HYPOAESTHESIA [None]
  - MYOCARDIAL INFARCTION [None]
  - MYOPIA [None]
  - NAUSEA [None]
  - PALPITATIONS [None]
  - PARAESTHESIA [None]
  - RENAL DISORDER [None]
  - SPEECH DISORDER [None]
  - VISION BLURRED [None]
